FAERS Safety Report 8792007 (Version 1)
Quarter: 2012Q4

REPORT INFORMATION
  Report Type: 
  Country: FR (occurrence: FR)
  Receive Date: 20120918
  Receipt Date: 20120918
  Transmission Date: 20130627
  Serious: Yes (Death, Hospitalization)
  Sender: FDA-Public Use
  Company Number: FR-SANOFI-AVENTIS-2012SA064710

PATIENT
  Age: 35 Year
  Sex: Female

DRUGS (4)
  1. CHLOROQUINE (SALT NOT SPECIFIED) [Suspect]
     Indication: DRUG USE FOR UNKNOWN INDICATION
     Route: 048
  2. EPINEPHRINE [Suspect]
     Indication: DRUG POISONING
     Dosage: infusion started at 0.5 mcg/kg/min
     Route: 065
  3. EPINEPHRINE [Suspect]
     Indication: DRUG POISONING
     Dosage: infusion increased to 3 mcg/kg/min
     Route: 065
  4. EPINEPHRINE [Suspect]
     Indication: DRUG POISONING
     Dosage: infusion, rapid weaning after emergent extracorporeal life support inserted
     Route: 065

REACTIONS (13)
  - Stress cardiomyopathy [Unknown]
  - Overdose [Unknown]
  - Electrocardiogram QRS complex prolonged [Unknown]
  - Ejection fraction decreased [Unknown]
  - Troponin I increased [Unknown]
  - Cardiogenic shock [Unknown]
  - Multi-organ failure [Fatal]
  - Hepatic failure [Fatal]
  - Renal failure acute [Fatal]
  - Haemolysis [Fatal]
  - Pulmonary oedema [Fatal]
  - Disseminated intravascular coagulation [Fatal]
  - Convulsion [Recovered/Resolved]
